FAERS Safety Report 9922506 (Version 2)
Quarter: 2014Q1

REPORT INFORMATION
  Report Type: Spontaneous
  Country: BR (occurrence: BR)
  Receive Date: 20140225
  Receipt Date: 20140320
  Transmission Date: 20141002
  Serious: Yes (Death, Hospitalization)
  Sender: FDA-Public Use
  Company Number: BR-PFIZER INC-2014052511

PATIENT
  Sex: Male

DRUGS (5)
  1. ATENOLOL [Suspect]
     Dosage: UNK
     Route: 048
     Dates: start: 201308
  2. BRILINTA [Suspect]
     Indication: MYOCARDIAL INFARCTION
     Dosage: 90 MG
     Route: 048
     Dates: start: 201308
  3. ACETYLSALICYLIC ACID [Concomitant]
     Dosage: UNK
     Dates: start: 201308
  4. SIMVASTATIN [Concomitant]
     Dosage: UNK
     Dates: start: 201308
  5. FLUOXETINE [Concomitant]
     Dosage: UNK
     Dates: start: 201308

REACTIONS (5)
  - Septic shock [Fatal]
  - Multiple injuries [Fatal]
  - Gun shot wound [Not Recovered/Not Resolved]
  - Multi-organ failure [Not Recovered/Not Resolved]
  - Haemorrhage [Not Recovered/Not Resolved]
